FAERS Safety Report 25421337 (Version 1)
Quarter: 2025Q2

REPORT INFORMATION
  Report Type: Report from Study
  Country: US (occurrence: US)
  Receive Date: 20250611
  Receipt Date: 20250611
  Transmission Date: 20250717
  Serious: Yes (Other)
  Sender: ROCHE
  Company Number: US-ROCHE-1981411

PATIENT
  Age: 72 Year
  Sex: Female

DRUGS (4)
  1. CELLCEPT [Suspect]
     Active Substance: MYCOPHENOLATE MOFETIL
     Indication: Dermatomyositis
     Dosage: 2 TABLETS EVERY MORING AND 3 TABLETS EVERY NIGHT AT BED TIME, INCOMPLETE PRESCRIPTION/ MARKED OTHER
     Route: 048
  2. CELLCEPT [Suspect]
     Active Substance: MYCOPHENOLATE MOFETIL
     Indication: Dermatomyositis
     Dosage: 3 TABLETS BID
     Route: 048
  3. CELLCEPT [Suspect]
     Active Substance: MYCOPHENOLATE MOFETIL
     Indication: Dermatomyositis
     Dosage: 3 TABLETS BID. LAST TREATMENT DATE: 26/APR/2024.
     Route: 048
  4. CELLCEPT [Suspect]
     Active Substance: MYCOPHENOLATE MOFETIL
     Route: 048

REACTIONS (8)
  - Off label use [Unknown]
  - Malaise [Unknown]
  - Abnormal loss of weight [Unknown]
  - Urinary tract infection [Unknown]
  - Interstitial lung disease [Unknown]
  - Fatigue [Unknown]
  - Rash [Unknown]
  - Drug therapy [Unknown]
